FAERS Safety Report 9382305 (Version 1)
Quarter: 2013Q3

REPORT INFORMATION
  Report Type: Spontaneous
  Country: US (occurrence: None)
  Receive Date: 20130702
  Receipt Date: 20130702
  Transmission Date: 20140515
  Serious: Yes (Other)
  Sender: FDA-Public Use
  Company Number: None

PATIENT
  Age: 43 Year
  Sex: Male
  Weight: 120.2 kg

DRUGS (8)
  1. ALPRAZOLAM ER [Suspect]
     Indication: ANXIETY
     Dosage: 1MG 1/2 TABLET 3X DAILY ORAL
     Route: 048
     Dates: start: 20130610, end: 20130611
  2. ALPRAZOLAM ER [Suspect]
     Indication: ANXIETY DISORDER
     Dosage: 1MG 1/2 TABLET 3X DAILY ORAL
     Route: 048
     Dates: start: 20130610, end: 20130611
  3. ALPRAZOLAM ER [Suspect]
     Dosage: 1MG 1/2 TABLET 3X DAILY ORAL
     Route: 048
     Dates: start: 20130610, end: 20130611
  4. HYDROXYZINE PAM [Concomitant]
  5. ATENOLOL [Concomitant]
  6. FLUOXETINE [Concomitant]
  7. OMEPRAZOLE [Concomitant]
  8. FLOVENT HFA [Concomitant]

REACTIONS (5)
  - Drug ineffective [None]
  - Therapeutic response unexpected with drug substitution [None]
  - Product substitution issue [None]
  - Anxiety [None]
  - Product quality issue [None]
